FAERS Safety Report 6554242-X (Version None)
Quarter: 2010Q1

REPORT INFORMATION
  Report Type: 
  Country: None (occurrence: None)
  Receive Date: 20100127
  Receipt Date: 20100114
  Transmission Date: 20100710
  Serious: Yes (Hospitalization)
  Sender: FDA-Public Use
  Company Number: JP-WATSON-2010-00621

PATIENT
  Age: 40 Year
  Sex: Male

DRUGS (5)
  1. NORTRIPTYLINE HCL [Suspect]
     Indication: DEPRESSION
     Dosage: UNK
  2. SERTRALINE HYDROCHLORIDE [Suspect]
     Indication: DEPRESSION
  3. MIANSERIN [Suspect]
     Indication: DEPRESSION
  4. BROTIZOLAM [Suspect]
     Indication: SEDATIVE THERAPY
  5. AMANTADINE HCL [Suspect]
     Indication: DRUG USE FOR UNKNOWN INDICATION

REACTIONS (3)
  - BRUGADA SYNDROME [None]
  - CONVULSION [None]
  - SYNCOPE [None]
